FAERS Safety Report 23738829 (Version 1)
Quarter: 2024Q2

REPORT INFORMATION
  Report Type: Spontaneous
  Country: US (occurrence: US)
  Receive Date: 20240413
  Receipt Date: 20240413
  Transmission Date: 20240716
  Serious: No
  Sender: FDA-Public Use
  Company Number: US-JNJFOC-20240413579

PATIENT
  Sex: Male
  Weight: 78.542 kg

DRUGS (1)
  1. XARELTO [Suspect]
     Active Substance: RIVAROXABAN
     Indication: Hypertrophic cardiomyopathy
     Dosage: PRESCRIPTION NUMBER: 719132?GTIN NUMBER: 00350458579307?SERIAL NUMBER: 100052117107
     Route: 048

REACTIONS (2)
  - Product size issue [Unknown]
  - Off label use [Unknown]
